FAERS Safety Report 16371801 (Version 15)
Quarter: 2020Q4

REPORT INFORMATION
  Report Type: Spontaneous
  Country: US (occurrence: US)
  Receive Date: 20190530
  Receipt Date: 20201207
  Transmission Date: 20210113
  Serious: No
  Sender: FDA-Public Use
  Company Number: US-PFIZER INC-2019225409

PATIENT
  Age: 83 Year
  Sex: Female
  Weight: 71 kg

DRUGS (18)
  1. EXEMESTANE. [Concomitant]
     Active Substance: EXEMESTANE
     Dosage: 25 MG, 1X/DAY
     Route: 048
     Dates: start: 201812
  2. VITAMIN C [Concomitant]
     Active Substance: ASCORBIC ACID
     Dosage: 100 MG, DAILY
  3. IBRANCE [Suspect]
     Active Substance: PALBOCICLIB
     Dosage: UNK
     Route: 048
     Dates: start: 201901, end: 201901
  4. IBRANCE [Suspect]
     Active Substance: PALBOCICLIB
     Dosage: 125 MG, CYCLIC (CAPSULE FOR 21 DAYS AND OFF 7 DAYS)
     Route: 048
  5. TURMERIC [Concomitant]
     Active Substance: HERBALS\TURMERIC
     Dosage: 1200 MG, 2X/DAY
  6. PROPRANOLOL [Concomitant]
     Active Substance: PROPRANOLOL HYDROCHLORIDE
     Dosage: UNK, 2X/DAY (TAKE AM AND PM)
     Dates: start: 201906
  7. RED YEAST RICE [Concomitant]
     Active Substance: DIETARY SUPPLEMENT
     Indication: BLOOD CHOLESTEROL ABNORMAL
     Dosage: 2 DF, DAILY
  8. IBRANCE [Suspect]
     Active Substance: PALBOCICLIB
     Indication: BREAST CANCER METASTATIC
     Dosage: 125 MG, CYCLIC (21 DAYS ON AND 7 DAYS OFF,ON HER 4TH CYCLE)
     Route: 048
     Dates: start: 20190119, end: 201901
  9. MULTIVITAMIN ACTIVE WOMAN [Concomitant]
     Dosage: 1 DF, DAILY
  10. TIMOLOL. [Concomitant]
     Active Substance: TIMOLOL
     Dosage: 1 GTT, 1X/DAY
     Route: 047
  11. IBRANCE [Suspect]
     Active Substance: PALBOCICLIB
     Dosage: 125 MG, CYCLIC (21 DAYS AND THEN OFF FOR 7 DAYS)
     Route: 048
     Dates: start: 201901, end: 2019
  12. TURMERIC [Concomitant]
     Active Substance: HERBALS\TURMERIC
     Dosage: 2 DF, DAILY
  13. EXEMESTANE. [Concomitant]
     Active Substance: EXEMESTANE
     Indication: BREAST CANCER METASTATIC
     Dosage: 25 MG, UNK
     Dates: start: 20181027, end: 2018
  14. RED YEAST RICE [Concomitant]
     Active Substance: DIETARY SUPPLEMENT
     Dosage: 1200 MG, 2X/DAY [ONE IN THE MORNING AND ONE AT NIGHT]
  15. VITAMIN D3 [Concomitant]
     Active Substance: CHOLECALCIFEROL
     Dosage: 5000 IU, DAILY (5000 IU PER DAY)
  16. CENTRUM SILVER [Concomitant]
     Active Substance: MINERALS\VITAMINS
     Dosage: 1 DF, 1X/DAY
  17. ASPIRIN. [Concomitant]
     Active Substance: ASPIRIN
     Dosage: 81 MG, 1X/DAY (1 PER NIGHT)
  18. ESCITALOPRAM [Concomitant]
     Active Substance: ESCITALOPRAM OXALATE
     Dosage: 0.5 UNK, (1/2 TAB EVERY OTHER DAY-EVERY DAY IF NEED)

REACTIONS (19)
  - Glossodynia [Not Recovered/Not Resolved]
  - Blood pressure abnormal [Recovered/Resolved]
  - Eye irritation [Not Recovered/Not Resolved]
  - Blood sodium decreased [Unknown]
  - Product dose omission issue [Unknown]
  - Aphthous ulcer [Recovering/Resolving]
  - Hunger [Unknown]
  - Dry eye [Unknown]
  - Tinnitus [Unknown]
  - Fatigue [Unknown]
  - Alopecia [Not Recovered/Not Resolved]
  - Arthralgia [Unknown]
  - Stomatitis [Recovering/Resolving]
  - Visual impairment [Unknown]
  - Tongue movement disturbance [Not Recovered/Not Resolved]
  - Neoplasm progression [Unknown]
  - Weight increased [Not Recovered/Not Resolved]
  - Trigger finger [Unknown]
  - Lacrimation increased [Not Recovered/Not Resolved]

NARRATIVE: CASE EVENT DATE: 2019
